FAERS Safety Report 16367281 (Version 4)
Quarter: 2022Q3

REPORT INFORMATION
  Report Type: Report from Study
  Country: DE (occurrence: DE)
  Receive Date: 20190529
  Receipt Date: 20220803
  Transmission Date: 20221027
  Serious: Yes (Hospitalization)
  Sender: FDA-Public Use
  Company Number: DE-BIOGEN-2019BI00740869

PATIENT
  Sex: Female
  Weight: 72 kg

DRUGS (4)
  1. PLEGRIDY [Suspect]
     Active Substance: PEGINTERFERON BETA-1A
     Indication: Multiple sclerosis
     Route: 050
     Dates: start: 201405
  2. PLEGRIDY [Suspect]
     Active Substance: PEGINTERFERON BETA-1A
     Route: 050
     Dates: start: 201405
  3. PLEGRIDY [Suspect]
     Active Substance: PEGINTERFERON BETA-1A
     Route: 050
     Dates: start: 201405
  4. VITAMIN D [Concomitant]
     Active Substance: VITAMIN D NOS
     Indication: Product used for unknown indication
     Route: 050

REACTIONS (8)
  - Renal failure [Not Recovered/Not Resolved]
  - Renal atrophy [Recovered/Resolved]
  - Multiple organ dysfunction syndrome [Recovered/Resolved]
  - Quadriparesis [Not Recovered/Not Resolved]
  - Coronary artery occlusion [Recovered/Resolved]
  - Aortic valve stenosis [Recovered/Resolved]
  - Cystitis noninfective [Recovered/Resolved]
  - Neurological procedural complication [Recovered/Resolved]

NARRATIVE: CASE EVENT DATE: 20180101
